FAERS Safety Report 5680959-5 (Version None)
Quarter: 2008Q1

REPORT INFORMATION
  Report Type: 
  Country: None (occurrence: None)
  Receive Date: 20080326
  Receipt Date: 20080107
  Transmission Date: 20080703
  Serious: Yes (Other)
  Sender: FDA-Public Use
  Company Number: US-PFIZER INC-2008024133

PATIENT
  Sex: Female

DRUGS (1)
  1. LYRICA [Suspect]
     Indication: NEURALGIA
     Dosage: DAILY DOSE:50MG

REACTIONS (5)
  - BLOOD GLUCOSE INCREASED [None]
  - DYSGEUSIA [None]
  - FOOD CRAVING [None]
  - SOMNOLENCE [None]
  - WEIGHT INCREASED [None]
